FAERS Safety Report 6957921-5 (Version None)
Quarter: 2010Q3

REPORT INFORMATION
  Report Type: 
  Country: None (occurrence: None)
  Receive Date: 20100830
  Receipt Date: 20100830
  Transmission Date: 20110219
  Serious: No
  Sender: FDA-Public Use
  Company Number: None

PATIENT
  Sex: Male
  Weight: 83.9154 kg

DRUGS (1)
  1. ZICAM COLD REMEDY NASAL GEL N/A MATRIXX INITIATIVES [Suspect]
     Indication: RHINITIS ALLERGIC
     Dosage: ONE SPRAY EACH NOSTRIL TWICE A DAY NASAL
     Route: 045
     Dates: start: 20100801

REACTIONS (2)
  - HYPOGEUSIA [None]
  - HYPOSMIA [None]
